FAERS Safety Report 25148013 (Version 2)
Quarter: 2025Q2

REPORT INFORMATION
  Report Type: Spontaneous
  Country: US (occurrence: US)
  Receive Date: 20250402
  Receipt Date: 20250415
  Transmission Date: 20250717
  Serious: Yes (Other)
  Sender: TEVA
  Company Number: US-TEVA-VS-3314350

PATIENT
  Age: 68 Year
  Sex: Male

DRUGS (5)
  1. MYCOPHENOLATE MOFETIL [Suspect]
     Active Substance: MYCOPHENOLATE MOFETIL
     Indication: Corneal graft failure
     Route: 048
  2. BRIMONIDINE [Suspect]
     Active Substance: BRIMONIDINE TARTRATE
     Indication: Uveitic glaucoma
     Route: 061
  3. PREDNISOLONE ACETATE [Suspect]
     Active Substance: PREDNISOLONE ACETATE
     Indication: Corneal oedema
     Dosage: EYE DROPS
     Route: 061
  4. TIMOLOL [Suspect]
     Active Substance: TIMOLOL
     Indication: Uveitic glaucoma
     Route: 061
  5. SODIUM CHLORIDE [Suspect]
     Active Substance: SODIUM CHLORIDE
     Indication: Corneal oedema
     Route: 061

REACTIONS (2)
  - Infectious crystalline keratopathy [Recovered/Resolved]
  - Drug ineffective [Unknown]
